FAERS Safety Report 19431288 (Version 1)
Quarter: 2021Q2

REPORT INFORMATION
  Report Type: Report from Study
  Country: IR (occurrence: IR)
  Receive Date: 20210618
  Receipt Date: 20210618
  Transmission Date: 20210717
  Serious: Yes (Other)
  Sender: FDA-Public Use
  Company Number: IR-JNJFOC-20210635537

PATIENT

DRUGS (2)
  1. TRAMADOL HYDROCHLORIDE. [Suspect]
     Active Substance: TRAMADOL HYDROCHLORIDE
     Indication: PAIN
     Dosage: UNK
     Route: 065
  2. TRAMADOL HYDROCHLORIDE. [Suspect]
     Active Substance: TRAMADOL HYDROCHLORIDE
     Indication: PAIN

REACTIONS (17)
  - Toxicity to various agents [Unknown]
  - Vomiting [Unknown]
  - Drug abuse [Unknown]
  - Rhabdomyolysis [Unknown]
  - Hepatic failure [Unknown]
  - Loss of consciousness [Unknown]
  - Constipation [Unknown]
  - Somnolence [Unknown]
  - Seizure [Unknown]
  - Headache [Unknown]
  - Dizziness [Unknown]
  - Renal failure [Unknown]
  - Overdose [Unknown]
  - Respiratory arrest [Unknown]
  - Nausea [Unknown]
  - Tachycardia [Unknown]
  - Ataxia [Unknown]
